FAERS Safety Report 6438020-8 (Version None)
Quarter: 2009Q4

REPORT INFORMATION
  Report Type: 
  Country: None (occurrence: None)
  Receive Date: 20091112
  Receipt Date: 20091030
  Transmission Date: 20100525
  Serious: Yes (Other)
  Sender: FDA-Public Use
  Company Number: TR-ELI_LILLY_AND_COMPANY-TR200910007951

PATIENT

DRUGS (4)
  1. HUMULIN R [Suspect]
     Dosage: 8 UNK, 3/D
     Route: 064
  2. HUMULIN R [Suspect]
     Dosage: 8 U, EACH NOON
     Route: 064
  3. HUMULIN R [Suspect]
     Dosage: 8 U, EACH EVENING
     Route: 064
  4. HUMULIN N [Suspect]
     Dosage: 6 U, EACH NIGHT
     Route: 064

REACTIONS (3)
  - DRUG EXPOSURE DURING PREGNANCY [None]
  - PREMATURE BABY [None]
  - SMALL FOR DATES BABY [None]
